FAERS Safety Report 21358542 (Version 1)
Quarter: 2022Q3

REPORT INFORMATION
  Report Type: Spontaneous
  Country: US (occurrence: US)
  Receive Date: 20220921
  Receipt Date: 20220921
  Transmission Date: 20221027
  Serious: No
  Sender: FDA-Public Use
  Company Number: US-PERRIGO-21US024622

PATIENT

DRUGS (1)
  1. ESOMEPRAZOLE MAGNESIUM [Suspect]
     Active Substance: ESOMEPRAZOLE MAGNESIUM
     Indication: Dyspepsia
     Dosage: UNK
     Route: 048
     Dates: start: 202109

REACTIONS (1)
  - Therapeutic product effect incomplete [Unknown]

NARRATIVE: CASE EVENT DATE: 20210901
